FAERS Safety Report 4578133-9 (Version None)
Quarter: 2005Q1

REPORT INFORMATION
  Report Type: 
  Country: None (occurrence: None)
  Receive Date: 20050127
  Receipt Date: 20041021
  Transmission Date: 20050727
  Serious: No
  Sender: FDA-Public Use
  Company Number: USA040977171

PATIENT
  Age: 43 Year
  Sex: Male
  Weight: 100 kg

DRUGS (2)
  1. STRATTERA [Suspect]
     Indication: ATTENTION DEFICIT/HYPERACTIVITY DISORDER
     Dosage: 200 MG IN THE MORNING
     Dates: start: 20040826
  2. HALDOL (HALOPERIDOL DECANOATE) [Concomitant]

REACTIONS (4)
  - ANOREXIA [None]
  - DRUG INEFFECTIVE [None]
  - OVERDOSE [None]
  - SLEEP DISORDER [None]
